FAERS Safety Report 14519818 (Version 1)
Quarter: 2018Q1

REPORT INFORMATION
  Report Type: Spontaneous
  Country: US (occurrence: US)
  Receive Date: 20180212
  Receipt Date: 20180212
  Transmission Date: 20180509
  Serious: No
  Sender: FDA-Public Use
  Company Number: US-SUNOVION-2018SUN000352

PATIENT

DRUGS (2)
  1. LATUDA [Suspect]
     Active Substance: LURASIDONE HYDROCHLORIDE
     Indication: NARCOLEPSY
     Dosage: UNK, TITRATING DOSE DOWN
  2. STRATTERA [Concomitant]
     Active Substance: ATOMOXETINE HYDROCHLORIDE
     Indication: NARCOLEPSY

REACTIONS (4)
  - Product use in unapproved indication [Unknown]
  - Listless [Unknown]
  - Apathy [Unknown]
  - Asthenia [Unknown]
